FAERS Safety Report 4655265-8 (Version None)
Quarter: 2005Q2

REPORT INFORMATION
  Report Type: 
  Country: None (occurrence: None)
  Receive Date: 20050506
  Receipt Date: 20050422
  Transmission Date: 20051028
  Serious: Yes (Death, Hospitalization, Other)
  Sender: FDA-Public Use
  Company Number: JP-JNJFOC-20050405625

PATIENT
  Sex: Male
  Weight: 50 kg

DRUGS (5)
  1. CRAVIT [Suspect]
     Indication: PNEUMONIA
     Route: 049
     Dates: start: 20050411, end: 20050412
  2. LOXONIN [Concomitant]
     Route: 049
     Dates: start: 20050411, end: 20050412
  3. EMPYNASE [Concomitant]
     Route: 049
     Dates: start: 20050411, end: 20050412
  4. EMPYNASE [Concomitant]
     Route: 049
     Dates: start: 20050411, end: 20050412
  5. RESPLEN [Concomitant]
     Route: 049
     Dates: start: 20050411, end: 20050412

REACTIONS (3)
  - ANAPHYLACTIC SHOCK [None]
  - MULTI-ORGAN FAILURE [None]
  - RHABDOMYOLYSIS [None]
